FAERS Safety Report 4954585-7 (Version None)
Quarter: 2006Q1

REPORT INFORMATION
  Report Type: 
  Country: None (occurrence: None)
  Receive Date: 20060322
  Receipt Date: 20060321
  Transmission Date: 20060701
  Serious: Yes (Death)
  Sender: FDA-Public Use
  Company Number: 2006-139875-NL

PATIENT
  Sex: Male

DRUGS (2)
  1. MENOTROPINS [Suspect]
     Dosage: DF
  2. CLOMIPHENE [Concomitant]

REACTIONS (6)
  - CAESAREAN SECTION [None]
  - DEATH NEONATAL [None]
  - DRUG EXPOSURE BEFORE PREGNANCY [None]
  - MULTIPLE PREGNANCY [None]
  - PREMATURE BABY [None]
  - UMBILICAL CORD PROLAPSE [None]
